FAERS Safety Report 6078495-X (Version None)
Quarter: 2009Q1

REPORT INFORMATION
  Report Type: 
  Country: None (occurrence: None)
  Receive Date: 20090211
  Receipt Date: 20090211
  Transmission Date: 20090719
  Serious: No
  Sender: FDA-Public Use
  Company Number: None

PATIENT
  Age: 28 Year
  Sex: Female
  Weight: 67.1324 kg

DRUGS (1)
  1. MIRENA [Suspect]
     Indication: CONTRACEPTION
     Dates: start: 20070901, end: 20090204

REACTIONS (9)
  - ABDOMINAL DISTENSION [None]
  - ALOPECIA [None]
  - CONFUSIONAL STATE [None]
  - DIZZINESS [None]
  - FEELING ABNORMAL [None]
  - HEADACHE [None]
  - MEMORY IMPAIRMENT [None]
  - MUSCLE SPASMS [None]
  - MYODESOPSIA [None]
